FAERS Safety Report 5945699-3 (Version None)
Quarter: 2008Q4

REPORT INFORMATION
  Report Type: 
  Country: None (occurrence: None)
  Receive Date: 20081104
  Receipt Date: 20081020
  Transmission Date: 20090506
  Serious: Yes (Disabling)
  Sender: FDA-Public Use
  Company Number: 2008S1018975

PATIENT
  Sex: Male
  Weight: 70 kg

DRUGS (2)
  1. RANITIDINE [Suspect]
     Indication: PEPTIC ULCER
     Dosage: 300 MG; ORAL
     Route: 048
     Dates: start: 19960101, end: 20080701
  2. ESOMEPRAZOLE MAGNESIUM [Suspect]
     Indication: PEPTIC ULCER
     Dosage: 20 MG; ORAL
     Route: 048
     Dates: start: 20050101, end: 20080701

REACTIONS (1)
  - DYSTONIA [None]
